FAERS Safety Report 20532199 (Version 1)
Quarter: 2022Q1

REPORT INFORMATION
  Report Type: Spontaneous
  Country: US (occurrence: US)
  Receive Date: 20220301
  Receipt Date: 20220301
  Transmission Date: 20220424
  Serious: Yes (Hospitalization, Other)
  Sender: FDA-Public Use
  Company Number: US-SA-SAC20220225000756

PATIENT
  Age: 78 Year
  Sex: Male

DRUGS (13)
  1. DUPIXENT [Suspect]
     Active Substance: DUPILUMAB
     Indication: Dermatitis atopic
     Dosage: 300 MG, QOW
     Route: 058
  2. DUPIXENT [Suspect]
     Active Substance: DUPILUMAB
     Indication: Neurodermatitis
  3. ELIQUIS [Concomitant]
     Active Substance: APIXABAN
  4. ATORVASTATIN [Concomitant]
     Active Substance: ATORVASTATIN
  5. CIPROFLOXACIN [Concomitant]
     Active Substance: CIPROFLOXACIN
  6. TAMSULOSIN [Concomitant]
     Active Substance: TAMSULOSIN
  7. BRINZOLAMIDE [Concomitant]
     Active Substance: BRINZOLAMIDE
  8. GABAPENTIN [Concomitant]
     Active Substance: GABAPENTIN
  9. METHYLPREDNISOLONE [Concomitant]
     Active Substance: METHYLPREDNISOLONE
     Indication: Dermatitis atopic
  10. NITROFURANTOIN [Concomitant]
     Active Substance: NITROFURANTOIN
  11. TRAMADOL [Concomitant]
     Active Substance: TRAMADOL
  12. OXYCODONE [Concomitant]
     Active Substance: OXYCODONE
  13. METOPROLOL [Concomitant]
     Active Substance: METOPROLOL

REACTIONS (1)
  - Cerebrovascular accident [Unknown]

NARRATIVE: CASE EVENT DATE: 20210101
